FAERS Safety Report 7115292-8 (Version None)
Quarter: 2010Q4

REPORT INFORMATION
  Report Type: 
  Country: None (occurrence: None)
  Receive Date: 20101117
  Receipt Date: 20101117
  Transmission Date: 20110411
  Serious: Yes (Other)
  Sender: FDA-Public Use
  Company Number: None

PATIENT
  Sex: Female

DRUGS (2)
  1. ARICEPT [Suspect]
     Indication: DEMENTIA ALZHEIMER'S TYPE
     Dosage: 15MG ONCE DAILY PO
     Route: 048
  2. ARICEPT [Suspect]
     Indication: PROPHYLAXIS
     Dosage: 15MG ONCE DAILY PO
     Route: 048

REACTIONS (1)
  - HYPOAESTHESIA ORAL [None]
